FAERS Safety Report 7835059 (Version 10)
Quarter: 2014Q1

REPORT INFORMATION
  Report Type: Report from Study
  Country: FR (occurrence: FR)
  Receive Date: 20110301
  Receipt Date: 20140211
  Transmission Date: 20141002
  Serious: Yes (Hospitalization)
  Sender: FDA-Public Use
  Company Number: FR-ROCHE-754480

PATIENT
  Age: 55 Year
  Sex: Female
  Weight: 57 kg

DRUGS (10)
  1. TRASTUZUMAB [Suspect]
     Indication: BREAST CANCER METASTATIC
     Dosage: DATE OF LAST DOSE PRIOR TO SAE: 13/JAN/2011
     Route: 042
  2. TRASTUZUMAB [Suspect]
     Dosage: CYCLE 14, 6MG/KG, MAINTANANCE DOSE APPROXIMATELY AFTER 21 DAYS.
     Route: 042
     Dates: start: 20100422, end: 20110203
  3. CAPECITABINE [Suspect]
     Indication: BREAST CANCER METASTATIC
     Dosage: LAST DOSE PRIOR TO SAE 30 DECEMBER 2010.
     Route: 048
     Dates: start: 20100401, end: 20110114
  4. CAPECITABINE [Suspect]
     Dosage: LAST DOSE PRIOR TO SAE: 26 JANUARY 2011.
     Route: 048
     Dates: start: 20110118, end: 20110203
  5. AUGMENTIN [Concomitant]
     Route: 065
  6. CLARITINE [Concomitant]
     Route: 065
     Dates: start: 20110113, end: 20110113
  7. CLARITINE [Concomitant]
     Route: 065
     Dates: start: 20110203, end: 20110203
  8. ZOMETA [Concomitant]
     Route: 065
     Dates: start: 20110113, end: 20110113
  9. DAFALGAN [Concomitant]
     Route: 065
  10. DAFALGAN [Concomitant]
     Route: 065

REACTIONS (2)
  - Delirium [Recovered/Resolved]
  - Dizziness [Recovered/Resolved]
